FAERS Safety Report 5276545-1 (Version None)
Quarter: 2007Q1

REPORT INFORMATION
  Report Type: 
  Country: None (occurrence: None)
  Receive Date: 20061213
  Receipt Date: 20040123
  Transmission Date: 20070707
  Serious: No
  Sender: FDA-Public Use
  Company Number: 2004UW01311

PATIENT
  Sex: Female

DRUGS (3)
  1. SEROQUEL [Suspect]
  2. ZYPREXA [Concomitant]
  3. UNSPECIFIED [Concomitant]

REACTIONS (1)
  - TARDIVE DYSKINESIA [None]
